FAERS Safety Report 4291057-X (Version None)
Quarter: 2004Q1

REPORT INFORMATION
  Report Type: 
  Country: None (occurrence: None)
  Receive Date: 20040209
  Receipt Date: 20040119
  Transmission Date: 20041129
  Serious: Yes (Congenital Anomaly, Other)
  Sender: FDA-Public Use
  Company Number: M2004.6969

PATIENT
  Sex: Female

DRUGS (1)
  1. ATENOLOL [Suspect]
     Dosage: 50 MG, TRANS-PLACENTAL
     Route: 064

REACTIONS (9)
  - AUTOSOMAL CHROMOSOME ANOMALY [None]
  - COMPLICATIONS OF MATERNAL EXPOSURE TO THERAPEUTIC DRUGS [None]
  - CONGENITAL MUSCULOSKELETAL ANOMALY [None]
  - FOETAL GROWTH RETARDATION [None]
  - GRAFT DYSFUNCTION [None]
  - KIDNEY MALFORMATION [None]
  - MATERNAL DRUGS AFFECTING FOETUS [None]
  - PREMATURE BABY [None]
  - PYELONEPHRITIS [None]
